FAERS Safety Report 4653470-8 (Version None)
Quarter: 2005Q2

REPORT INFORMATION
  Report Type: 
  Country: None (occurrence: None)
  Receive Date: 20050505
  Receipt Date: 20050411
  Transmission Date: 20051028
  Serious: Yes (Hospitalization)
  Sender: FDA-Public Use
  Company Number: JP-GLAXOSMITHKLINE-B0377500A

PATIENT
  Age: 73 Year
  Sex: Female

DRUGS (11)
  1. VALTREX [Suspect]
     Indication: HERPES ZOSTER
     Dosage: 1000MG THREE TIMES PER DAY
     Route: 048
     Dates: start: 20050405, end: 20050408
  2. NOVOLIN [Concomitant]
     Indication: DIABETES MELLITUS
     Route: 058
  3. BASEN [Concomitant]
     Indication: DIABETES MELLITUS
     Dosage: .6MG PER DAY
     Route: 048
  4. ITOROL [Concomitant]
     Indication: ANGINA PECTORIS
     Dosage: 20MG PER DAY
     Route: 048
  5. NORVASC [Concomitant]
     Indication: HYPERTENSION
     Dosage: 5MG PER DAY
     Route: 048
  6. SERMION [Concomitant]
     Indication: DEMENTIA
     Dosage: 3TAB PER DAY
     Route: 048
  7. ARICEPT [Concomitant]
     Indication: DEMENTIA
     Dosage: 1TAB PER DAY
     Route: 048
  8. FLOMAX [Concomitant]
     Indication: INFECTION
     Dosage: 3TAB PER DAY
     Route: 048
     Dates: start: 20050405, end: 20050410
  9. MUCOSTA [Concomitant]
     Indication: GASTRITIS
     Dosage: 3TAB PER DAY
     Route: 048
     Dates: start: 20050405, end: 20050413
  10. CYANOCOBALAMIN [Concomitant]
     Indication: HERPES ZOSTER
     Route: 048
     Dates: start: 20050405, end: 20050413
  11. LOXONIN [Concomitant]
     Indication: HERPES ZOSTER
     Dosage: 3TAB PER DAY
     Route: 048
     Dates: start: 20050405, end: 20050413

REACTIONS (8)
  - BLOOD CREATINE PHOSPHOKINASE INCREASED [None]
  - BLOOD CREATININE INCREASED [None]
  - BLOOD UREA INCREASED [None]
  - HYPOGLYCAEMIA [None]
  - LOSS OF CONSCIOUSNESS [None]
  - RENAL FAILURE ACUTE [None]
  - RHABDOMYOLYSIS [None]
  - VOMITING [None]
